FAERS Safety Report 17489121 (Version 1)
Quarter: 2020Q1

REPORT INFORMATION
  Report Type: Spontaneous
  Country: US (occurrence: US)
  Receive Date: 20200303
  Receipt Date: 20200303
  Transmission Date: 20200409
  Serious: No
  Sender: FDA-Public Use
  Company Number: US-PERRIGO-19US011141

PATIENT
  Age: 50 Year
  Sex: Female
  Weight: 62.59 kg

DRUGS (1)
  1. NAPROXEN SODIUM. [Suspect]
     Active Substance: NAPROXEN SODIUM
     Indication: WRONG PRODUCT ADMINISTERED
     Dosage: 880 MG, SINGLE
     Route: 048
     Dates: start: 20190911, end: 20190911

REACTIONS (1)
  - Wrong product administered [Recovered/Resolved]

NARRATIVE: CASE EVENT DATE: 20190911
